FAERS Safety Report 6062778-3 (Version None)
Quarter: 2009Q1

REPORT INFORMATION
  Report Type: 
  Country: None (occurrence: None)
  Receive Date: 20090203
  Receipt Date: 20090121
  Transmission Date: 20090719
  Serious: Yes (Death)
  Sender: FDA-Public Use
  Company Number: US-JNJFOC-20090106930

PATIENT
  Sex: Male
  Weight: 66.23 kg

DRUGS (5)
  1. FENTANYL-75 [Suspect]
     Indication: DRUG USE FOR UNKNOWN INDICATION
     Route: 065
  2. IMITREX [Concomitant]
  3. BUTALBITAL [Concomitant]
  4. DARVON [Concomitant]
  5. EFFEXOR [Concomitant]

REACTIONS (1)
  - ARTERIOSCLEROSIS CORONARY ARTERY [None]
